FAERS Safety Report 13524327 (Version 1)
Quarter: 2017Q2

REPORT INFORMATION
  Report Type: Spontaneous
  Country: None (occurrence: FR)
  Receive Date: 20170508
  Receipt Date: 20170508
  Transmission Date: 20170830
  Serious: Yes (Death, Life-Threatening)
  Sender: FDA-Public Use
  Company Number: FR-ALLERGAN-1717964US

PATIENT
  Age: 45 Year
  Sex: Female

DRUGS (1)
  1. MILNACIPRAN - BP [Suspect]
     Active Substance: MILNACIPRAN
     Indication: MAJOR DEPRESSION
     Dosage: 50 MG, QD
     Route: 048

REACTIONS (3)
  - Cardio-respiratory arrest [Fatal]
  - Ventricular arrhythmia [Fatal]
  - Coma [Fatal]

NARRATIVE: CASE EVENT DATE: 20170130
